APPROVED DRUG PRODUCT: FEMCET
Active Ingredient: ACETAMINOPHEN; BUTALBITAL; CAFFEINE
Strength: 325MG;50MG;40MG
Dosage Form/Route: CAPSULE;ORAL
Application: A089102 | Product #001
Applicant: MALLINCKRODT CHEMICAL INC
Approved: Jun 19, 1985 | RLD: No | RS: No | Type: DISCN